FAERS Safety Report 15435450 (Version 1)
Quarter: 2018Q3

REPORT INFORMATION
  Report Type: Spontaneous
  Country: US (occurrence: US)
  Receive Date: 20180924
  Receipt Date: 20180924
  Transmission Date: 20181010
  Serious: Yes (Hospitalization, Other)
  Sender: FDA-Public Use
  Company Number: None

PATIENT
  Age: 92 Year
  Sex: Male
  Weight: 68 kg

DRUGS (1)
  1. APIXABAN [Suspect]
     Active Substance: APIXABAN
     Indication: ATRIAL FIBRILLATION
     Route: 048
     Dates: start: 20161126, end: 20170206

REACTIONS (7)
  - Lymphadenopathy [None]
  - Arteriosclerosis [None]
  - Fall [None]
  - Cerebral infarction [None]
  - Confusional state [None]
  - Therapy change [None]
  - Incorrect dose administered [None]

NARRATIVE: CASE EVENT DATE: 20170727
